FAERS Safety Report 9917562 (Version 5)
Quarter: 2014Q2

REPORT INFORMATION
  Report Type: Report from Study
  Country: GB (occurrence: GB)
  Receive Date: 20140221
  Receipt Date: 20140414
  Transmission Date: 20141212
  Serious: Yes (Life-Threatening, Hospitalization)
  Sender: FDA-Public Use
  Company Number: PHHO2012GB007906

PATIENT
  Age: 77 Year
  Sex: Male

DRUGS (11)
  1. ICL670A [Suspect]
     Indication: MYELODYSPLASTIC SYNDROME
     Dosage: 1.5 G, UNK
     Dates: start: 20110822, end: 20110913
  2. ICL670A [Suspect]
     Dosage: UNK UKN, UNK
     Dates: start: 20120305
  3. ASPIRIN [Concomitant]
     Indication: PROPHYLAXIS
     Dosage: 75 MG, DAILY
     Route: 048
     Dates: start: 2003, end: 20110913
  4. AMITRIPTYLINE [Concomitant]
     Dosage: 10 MG, DAILY
     Route: 048
  5. FRUSEMIDE [Concomitant]
     Indication: OEDEMA
     Dosage: 20 MG, DAILY
     Route: 048
     Dates: start: 20110630
  6. XALATAN [Concomitant]
     Indication: GLAUCOMA
     Dosage: UNK UKN, UNK
     Dates: start: 20100219
  7. GLYCEROL [Concomitant]
     Indication: CONSTIPATION
     Dosage: UNK UKN, UNK
     Dates: start: 20110630
  8. LENOGRASTIM [Concomitant]
     Indication: MYELODYSPLASTIC SYNDROME
     Dosage: UNK UKN, UNK
     Dates: start: 200907
  9. SPIRONOLACTONE [Concomitant]
     Indication: FLUID RETENTION
     Dosage: UNK UKN, UNK
     Dates: start: 20111207
  10. DOXEPIN [Concomitant]
     Indication: PRURITUS
     Dosage: UNK UKN, UNK
     Dates: start: 20120117
  11. FERRIPROX [Concomitant]
     Indication: IRON OVERLOAD
     Dosage: UNK UKN, UNK
     Dates: start: 20120911

REACTIONS (15)
  - Duodenal ulcer [Recovered/Resolved]
  - Gastrointestinal haemorrhage [Recovered/Resolved]
  - Haematochezia [Recovered/Resolved]
  - Haemoglobin decreased [Recovered/Resolved]
  - Pelvic haematoma [Unknown]
  - Postoperative ileus [Unknown]
  - Aspiration [Unknown]
  - Anastomotic leak [Recovered/Resolved]
  - Pleural effusion [Recovered/Resolved]
  - Dyspnoea [Unknown]
  - Acute coronary syndrome [Recovered/Resolved]
  - Atrial fibrillation [Recovered/Resolved]
  - Pulmonary oedema [Recovered/Resolved]
  - Diverticulum [Unknown]
  - Rectal haemorrhage [Unknown]
